FAERS Safety Report 21688014 (Version 1)
Quarter: 2022Q4

REPORT INFORMATION
  Report Type: Spontaneous
  Country: IN (occurrence: IN)
  Receive Date: 20221206
  Receipt Date: 20221206
  Transmission Date: 20230113
  Serious: Yes (Death, Life-Threatening)
  Sender: FDA-Public Use
  Company Number: IN-PFIZER INC-202201340488

PATIENT
  Age: 5 Month
  Sex: Male

DRUGS (4)
  1. CEFTRIAXONE SODIUM [Suspect]
     Active Substance: CEFTRIAXONE SODIUM
     Dosage: 100 MG/KG/DAY
  2. VANCOMYCIN HYDROCHLORIDE [Suspect]
     Active Substance: VANCOMYCIN HYDROCHLORIDE
     Dosage: 60 MG/KG/DAY
  3. MEROPENEM [Suspect]
     Active Substance: MEROPENEM
     Dosage: 60 MG/KG/DAY
  4. OSELTAMIVIR [Suspect]
     Active Substance: OSELTAMIVIR
     Indication: Antiviral treatment
     Dosage: UNK

REACTIONS (1)
  - Drug ineffective [Fatal]
